FAERS Safety Report 20678955 (Version 1)
Quarter: 2022Q2

REPORT INFORMATION
  Report Type: Report from Study
  Country: ES (occurrence: ES)
  Receive Date: 20220406
  Receipt Date: 20220406
  Transmission Date: 20220721
  Serious: Yes (Hospitalization)
  Sender: FDA-Public Use
  Company Number: ES-PFIZER INC-202200518165

PATIENT
  Age: 14 Year
  Sex: Female

DRUGS (2)
  1. METHYLPREDNISOLONE SODIUM SUCCINATE [Suspect]
     Active Substance: METHYLPREDNISOLONE SODIUM SUCCINATE
     Indication: Still^s disease
     Dosage: UNK
  2. PREDNISONE [Suspect]
     Active Substance: PREDNISONE
     Indication: Still^s disease
     Dosage: 1 MG/KG, DAILY

REACTIONS (3)
  - Pyrexia [Unknown]
  - Cough [Unknown]
  - Oropharyngeal pain [Unknown]
